FAERS Safety Report 23161659 (Version 2)
Quarter: 2024Q2

REPORT INFORMATION
  Report Type: Report from Study
  Country: US (occurrence: US)
  Receive Date: 20231108
  Receipt Date: 20240502
  Transmission Date: 20240715
  Serious: Yes (Death, Hospitalization)
  Sender: FDA-Public Use
  Company Number: US-ABBVIE-5373523

PATIENT
  Age: 71 Year
  Sex: Female

DRUGS (20)
  1. VENCLEXTA [Suspect]
     Active Substance: VENETOCLAX
     Indication: White blood cell count increased
     Dosage: STOP DATE : AUG 2023?100 MG TOTAL
     Route: 048
     Dates: start: 20230810
  2. VENCLEXTA [Suspect]
     Active Substance: VENETOCLAX
     Indication: White blood cell count increased
     Dosage: 100 MG TOTAL?ON DAYS 1-21 OF EVERY CYCLE
     Route: 048
     Dates: start: 20230810, end: 20231102
  3. VENCLEXTA [Suspect]
     Active Substance: VENETOCLAX
     Indication: White blood cell count increased
     Dosage: STOP DATE : 2024
     Route: 048
     Dates: start: 20240111
  4. VENCLEXTA [Suspect]
     Active Substance: VENETOCLAX
     Indication: White blood cell count increased
     Dosage: ON DAYS 1-10 EVERY 28 DAYS
     Route: 048
  5. VENCLEXTA [Suspect]
     Active Substance: VENETOCLAX
     Indication: White blood cell count increased
     Dosage: TAKE 2 TABLET(S) BY MOUTH DAILY ON DAYS 1 THROUGH 10 EVERY 28 DAY(S)
     Route: 048
  6. VENCLEXTA [Suspect]
     Active Substance: VENETOCLAX
     Indication: White blood cell count increased
     Dosage: TAKE 2 TABLET(S) BY MOUTH DAILY ON DAYS 1-14 OF EVERY 28 DAY CYCLE
     Route: 048
  7. LIPITOR [Concomitant]
     Active Substance: ATORVASTATIN CALCIUM
     Indication: Product used for unknown indication
     Dosage: FORM STRENGTH: 10 MILLIGRAM.
     Route: 048
  8. COZAAR [Concomitant]
     Active Substance: LOSARTAN POTASSIUM
     Indication: Product used for unknown indication
     Dosage: FORM STRENGTH: 100 MILLIGRAM.
     Route: 048
  9. LOPRESSOR [Concomitant]
     Active Substance: METOPROLOL TARTRATE
     Indication: Product used for unknown indication
     Dosage: FORM STRENGTH: 100 MILLIGRAM. TAKE 100 MG BY MOUTH 2 (TWO) TIMES A DAY.
     Route: 048
  10. CATAPRES [Concomitant]
     Active Substance: CLONIDINE HYDROCHLORIDE
     Indication: Product used for unknown indication
     Route: 048
     Dates: start: 20160114
  11. NOXAFIL [Concomitant]
     Active Substance: POSACONAZOLE
     Indication: Product used for unknown indication
     Dosage: FORM STRENGTH: 100 MILLIGRAM DR
     Route: 048
     Dates: start: 20230810, end: 20231108
  12. NORVASC [Concomitant]
     Active Substance: AMLODIPINE BESYLATE
     Indication: Product used for unknown indication
     Dosage: FORM STRENGTH: 10 MILLIGRAM.
     Route: 048
  13. TYLENOL [Concomitant]
     Active Substance: ACETAMINOPHEN
     Indication: Product used for unknown indication
     Dosage: TIME INTERVAL: AS NECESSARY: FORM STRENGTH: 500 MILLIGRAM?BY MOUTH AS NEEDED
     Route: 048
  14. VRAYLAR [Concomitant]
     Active Substance: CARIPRAZINE
     Indication: Product used for unknown indication
     Route: 048
  15. VITAMIN D3 [Concomitant]
     Active Substance: CHOLECALCIFEROL
     Indication: Product used for unknown indication
     Dosage: 25 MCG (1,000 UNIT)
     Route: 048
  16. AMBIEN [Concomitant]
     Active Substance: ZOLPIDEM TARTRATE
     Indication: Product used for unknown indication
     Dosage: FORM STRENGTH: 10 MILLIGRAM?AT BEDTIME
     Route: 048
  17. TESSALON [Concomitant]
     Active Substance: BENZONATATE
     Indication: Cough
     Dosage: TIME INTERVAL: 0.33333333 DAYS: FORM STRENGTH: 100 MILLIGRAM.
     Route: 048
     Dates: start: 20230707
  18. LASIX [Concomitant]
     Active Substance: FUROSEMIDE
     Indication: Product used for unknown indication
     Dosage: FORM STRENGTH: 20 MILLIGRAM.
     Route: 048
     Dates: start: 20230721
  19. MIRALAX [Concomitant]
     Active Substance: POLYETHYLENE GLYCOL 3350
     Indication: Product used for unknown indication
     Dosage: TIME INTERVAL: AS NECESSARY: AS NEEDED.
     Route: 048
  20. VITAMIN D3 K2 [Concomitant]
     Indication: Product used for unknown indication
     Dosage: 1,000-100 UNIT-MCG

REACTIONS (5)
  - Death [Fatal]
  - Off label use [Not Recovered/Not Resolved]
  - Lower limb fracture [Recovering/Resolving]
  - White blood cell count increased [Unknown]
  - Off label use [Not Recovered/Not Resolved]

NARRATIVE: CASE EVENT DATE: 20230801
